FAERS Safety Report 23262129 (Version 3)
Quarter: 2025Q3

REPORT INFORMATION
  Report Type: Spontaneous
  Country: RU (occurrence: RU)
  Receive Date: 20231205
  Receipt Date: 20250718
  Transmission Date: 20251020
  Serious: Yes (Other)
  Sender: IPSEN BIOPHARMACEUTICALS, INC.
  Company Number: RU-Korea IPSEN-2023-26862

PATIENT
  Age: 60 Year
  Sex: Female

DRUGS (3)
  1. LANREOTIDE ACETATE [Suspect]
     Active Substance: LANREOTIDE ACETATE
     Indication: Neuroendocrine tumour
     Dosage: 1 DOSE 1 TIME A DAY (IN THE AFTERNOON)
     Dates: start: 202205
  2. EVEROLIMUS [Suspect]
     Active Substance: EVEROLIMUS
     Indication: Neuroendocrine tumour
     Dosage: 10 MG PER DAY
     Dates: start: 202105
  3. OCTREOTIDE [Concomitant]
     Active Substance: OCTREOTIDE
     Indication: Neuroendocrine tumour
     Dosage: PROLONGED OCTREOTIDE 30 MG ONCE EVERY 4 WEEKS

REACTIONS (7)
  - Pyelonephritis [Unknown]
  - Hepatic neuroendocrine tumour [Unknown]
  - Rectal haemorrhage [Unknown]
  - Serum serotonin increased [Unknown]
  - Oral herpes [Unknown]
  - Blood pressure increased [Unknown]
  - Asthenia [Unknown]

NARRATIVE: CASE EVENT DATE: 20230620
